FAERS Safety Report 24591763 (Version 1)
Quarter: 2024Q4

REPORT INFORMATION
  Report Type: Spontaneous
  Country: US (occurrence: US)
  Receive Date: 20241108
  Receipt Date: 20241108
  Transmission Date: 20250114
  Serious: Yes (Other)
  Sender: GRAVITI PHARMACEUTICALS PRIVATE LIMITED
  Company Number: US-GRAVITIPHARMA-GRA-2410-US-LIT-0558

PATIENT
  Age: 78 Year
  Sex: Male

DRUGS (7)
  1. TRAMADOL HYDROCHLORIDE [Suspect]
     Active Substance: TRAMADOL HYDROCHLORIDE
     Indication: Neuropathy peripheral
     Route: 065
  2. GABAPENTIN [Suspect]
     Active Substance: GABAPENTIN
     Indication: Neuropathy peripheral
     Route: 065
  3. LYRICA [Suspect]
     Active Substance: PREGABALIN
     Indication: Neuropathy peripheral
     Route: 065
  4. METHOCARBAMOL [Suspect]
     Active Substance: METHOCARBAMOL
     Indication: Neuropathy peripheral
     Route: 065
  5. TRAZODONE [Suspect]
     Active Substance: TRAZODONE HYDROCHLORIDE
     Indication: Insomnia
     Route: 065
  6. ARMODAFINIL [Suspect]
     Active Substance: ARMODAFINIL
     Indication: Somnolence
     Route: 065
  7. DIPHENHYDRAMINE [Suspect]
     Active Substance: DIPHENHYDRAMINE
     Indication: Insomnia
     Route: 065

REACTIONS (3)
  - Narcolepsy [Recovered/Resolved]
  - Cognitive disorder [Recovered/Resolved]
  - Amnesia [Unknown]
